FAERS Safety Report 8803365 (Version 1)
Quarter: 2012Q4

REPORT INFORMATION
  Report Type: 
  Country: NL (occurrence: NL)
  Receive Date: 20120924
  Receipt Date: 20120924
  Transmission Date: 20130627
  Serious: Yes (Death)
  Sender: FDA-Public Use
  Company Number: PHHY2012NL071957

PATIENT
  Age: 43 Year
  Sex: Female

DRUGS (3)
  1. ZOMETA [Suspect]
     Indication: BREAST CANCER METASTATIC
     Dosage: 4mg/100ml solution once per 28 days
  2. ZOMETA [Suspect]
     Dosage: 4mg/100ml solution once per 28 days
     Dates: start: 20120720
  3. ZOMETA [Suspect]
     Dosage: 4mg/100ml solution once per 28 days

REACTIONS (2)
  - Euthanasia [Fatal]
  - Breast cancer metastatic [Fatal]
